FAERS Safety Report 8270461-9 (Version None)
Quarter: 2012Q2

REPORT INFORMATION
  Report Type: 
  Country: None (occurrence: None)
  Receive Date: 20120410
  Receipt Date: 20120329
  Transmission Date: 20120825
  Serious: Yes (Other)
  Sender: FDA-Public Use
  Company Number: US-SANOFI-AVENTIS-2012SA012694

PATIENT
  Age: 84 Year
  Sex: Female
  Weight: 55.33 kg

DRUGS (8)
  1. GLIMEPIRIDE [Concomitant]
  2. TOPROL-XL [Concomitant]
     Route: 048
  3. LUTEIN [Concomitant]
     Route: 048
  4. PLAVIX [Suspect]
     Route: 048
     Dates: start: 20070627
  5. ASPIRIN [Concomitant]
     Route: 048
  6. PRAVASTATIN [Concomitant]
  7. NITROGLYCERIN [Concomitant]
  8. MULTI-VITAMINS [Concomitant]
     Route: 048

REACTIONS (4)
  - SYNCOPE [None]
  - HEAD INJURY [None]
  - FALL [None]
  - SKIN DISCOLOURATION [None]
